FAERS Safety Report 23681856 (Version 3)
Quarter: 2024Q2

REPORT INFORMATION
  Report Type: Spontaneous
  Country: TR (occurrence: TR)
  Receive Date: 20240328
  Receipt Date: 20240409
  Transmission Date: 20240716
  Serious: Yes (Life-Threatening, Hospitalization, Other)
  Sender: FDA-Public Use
  Company Number: TR-MACLEODS PHARMACEUTICALS US LTD-MAC2024046523

PATIENT

DRUGS (1)
  1. METFORMIN HYDROCHLORIDE [Suspect]
     Active Substance: METFORMIN HYDROCHLORIDE
     Indication: Product used for unknown indication
     Dosage: 40 DOSAGE FORM, SINGLE (40 G OF MTF INGESTION)
     Route: 048

REACTIONS (12)
  - Ventricular tachycardia [Recovered/Resolved]
  - Circulatory collapse [Recovered/Resolved]
  - Vasoplegia syndrome [Recovered/Resolved]
  - Toxicity to various agents [Recovered/Resolved]
  - Haemodynamic instability [Recovered/Resolved]
  - Suicide attempt [Unknown]
  - Intentional self-injury [Unknown]
  - Pericardial effusion [Recovered/Resolved]
  - Left ventricular dysfunction [Recovering/Resolving]
  - Lactic acidosis [Recovered/Resolved]
  - Hypotension [Recovered/Resolved]
  - Overdose [Recovering/Resolving]
